FAERS Safety Report 15500810 (Version 1)
Quarter: 2018Q4

REPORT INFORMATION
  Report Type: Spontaneous
  Country: US (occurrence: US)
  Receive Date: 20181015
  Receipt Date: 20181015
  Transmission Date: 20190205
  Serious: No
  Sender: FDA-Public Use
  Company Number: US-TEVA-2018-US-962059

PATIENT
  Age: 16 Year
  Sex: Male

DRUGS (2)
  1. DIAZEPAM. [Suspect]
     Active Substance: DIAZEPAM
     Indication: EPILEPSY
     Dosage: 12.5 MILLIGRAM DAILY;
     Route: 054
     Dates: start: 2016
  2. DIAZEPAM. [Suspect]
     Active Substance: DIAZEPAM
     Dosage: 15 MILLIGRAM DAILY;
     Route: 054
     Dates: start: 2016

REACTIONS (1)
  - Intentional product use issue [Unknown]
